FAERS Safety Report 17063068 (Version 1)
Quarter: 2019Q4

REPORT INFORMATION
  Report Type: Spontaneous
  Country: US (occurrence: US)
  Receive Date: 20191023
  Receipt Date: 20191023
  Transmission Date: 20200122
  Serious: No
  Sender: FDA-Public Use
  Company Number: None

PATIENT
  Sex: Male

DRUGS (1)
  1. VIGABATRIN POWDER 500MG PAR [Suspect]
     Active Substance: VIGABATRIN
     Indication: SEIZURE
     Dates: start: 20180108

REACTIONS (3)
  - Pain [None]
  - Drug ineffective [None]
  - Crying [None]
